FAERS Safety Report 7915204-0 (Version None)
Quarter: 2011Q4

REPORT INFORMATION
  Report Type: 
  Country: None (occurrence: None)
  Receive Date: 20111115
  Receipt Date: 20111110
  Transmission Date: 20120403
  Serious: Yes (Hospitalization)
  Sender: FDA-Public Use
  Company Number: US-PFIZER INC-2011277507

PATIENT
  Age: 66 Year
  Sex: Female
  Weight: 59.42 kg

DRUGS (18)
  1. MAGNESIUM CITRATE [Suspect]
     Dosage: BEFORE SURGERY
     Route: 048
  2. CARVEDILOL [Suspect]
     Dosage: 25 MG, 2X/DAY
  3. LORTAB [Suspect]
     Dosage: 1 DOSAGE FORMS, EVERY 6 HOURS
  4. SIMVASTATIN [Suspect]
     Dosage: 40 MG, 2X/DAY
     Route: 048
  5. PIOGLITAZONE HYDROCHLORIDE [Suspect]
     Dosage: 30 MG, 1X/DAY
     Route: 048
  6. ARTIFICIAL TEARS [Concomitant]
     Dosage: 4GTT
     Route: 047
  7. TYLENOL EXTRA-STRENGTH [Concomitant]
     Dosage: 500 MG, AS NEEDED
     Route: 048
  8. TESSALON [Suspect]
     Dosage: 100 MG, 3X/DAY
     Route: 048
  9. CIPROFLOXACIN [Concomitant]
     Dosage: 1000MG/10ML (2 IN 1 D)
  10. AMLODIPINE BESYLATE [Suspect]
     Dosage: 10 MG, 1X/DAY
     Route: 048
  11. ASPIRIN [Concomitant]
     Dosage: 81 MG, 1 IN 1 D
  12. ACTONEL [Concomitant]
     Dosage: 35 MG, 1 IN 1 WEEK
  13. MEGACE [Suspect]
     Dosage: UNK
     Route: 048
  14. RANITIDINE [Suspect]
     Dosage: 150 MG, 2X/DAY
  15. COLACE [Suspect]
     Dosage: 100 MG, 2X/DAY
  16. FERGON [Suspect]
     Dosage: 325 MG, 2X/DAY
     Route: 048
  17. SUNITINIB MALATE [Suspect]
     Dosage: 50 MG, 2X/DAY
     Route: 048
  18. ZOFRAN [Suspect]
     Dosage: 1 DOSAGE FORMS, EVERY 6 HRS
     Route: 048

REACTIONS (6)
  - MALAISE [None]
  - FATIGUE [None]
  - COGNITIVE DISORDER [None]
  - ABDOMINAL PAIN [None]
  - HEADACHE [None]
  - VOMITING [None]
